FAERS Safety Report 9092978 (Version 1)
Quarter: 2013Q1

REPORT INFORMATION
  Report Type: Report from Study
  Country: US (occurrence: US)
  Receive Date: 20130218
  Receipt Date: 20130218
  Transmission Date: 20140127
  Serious: No
  Sender: FDA-Public Use
  Company Number: US-ABBOTT-12P-163-0972545-00

PATIENT
  Sex: 0

DRUGS (1)
  1. SIMCOR [Suspect]
     Indication: PRODUCT USED FOR UNKNOWN INDICATION
     Dates: start: 201208

REACTIONS (4)
  - Flushing [Recovered/Resolved]
  - Skin burning sensation [Recovered/Resolved]
  - Generalised erythema [Recovered/Resolved]
  - Back pain [Unknown]
